FAERS Safety Report 6880812-5 (Version None)
Quarter: 2010Q2

REPORT INFORMATION
  Report Type: 
  Country: None (occurrence: None)
  Receive Date: 20100630
  Receipt Date: 20090605
  Transmission Date: 20101027
  Serious: Yes (Other)
  Sender: FDA-Public Use
  Company Number: 2009223765

PATIENT
  Age: 38 Year
  Sex: Female

DRUGS (1)
  1. ZITHROMAX [Suspect]
     Indication: BRONCHITIS
     Dates: start: 20090501, end: 20090501

REACTIONS (3)
  - ARTHRALGIA [None]
  - HYPERSENSITIVITY [None]
  - PAIN IN EXTREMITY [None]
